FAERS Safety Report 9460146 (Version 1)
Quarter: 2013Q3

REPORT INFORMATION
  Report Type: Spontaneous
  Country: US (occurrence: US)
  Receive Date: 20130815
  Receipt Date: 20130815
  Transmission Date: 20140515
  Serious: No
  Sender: FDA-Public Use
  Company Number: US-009507513-1308USA003215

PATIENT
  Sex: Female

DRUGS (5)
  1. CLARITIN [Suspect]
     Indication: MIDDLE EAR EFFUSION
     Dosage: 10 MG, ONCE
     Route: 048
     Dates: start: 20130802
  2. CLARITIN [Suspect]
     Indication: MEDICAL OBSERVATION
  3. BENADRYL [Suspect]
     Indication: MIDDLE EAR EFFUSION
     Dosage: UNK, ONCE
     Dates: start: 20130801
  4. BENADRYL [Suspect]
     Indication: MEDICAL OBSERVATION
  5. UNSPECIFIED [Suspect]
     Indication: PRODUCT USED FOR UNKNOWN INDICATION
     Dosage: UNK, UNKNOWN

REACTIONS (4)
  - Confusional state [Not Recovered/Not Resolved]
  - Feeling abnormal [Not Recovered/Not Resolved]
  - Dizziness [Not Recovered/Not Resolved]
  - Off label use [Unknown]
